FAERS Safety Report 24207430 (Version 2)
Quarter: 2024Q3

REPORT INFORMATION
  Report Type: Spontaneous
  Country: US (occurrence: US)
  Receive Date: 20240814
  Receipt Date: 20240916
  Transmission Date: 20241017
  Serious: No
  Sender: SANOFI AVENTIS
  Company Number: US-SA-SAC20240812000124

PATIENT
  Sex: Male
  Weight: 74.8 kg

DRUGS (2)
  1. SARCLISA [Suspect]
     Active Substance: ISATUXIMAB-IRFC
     Indication: Plasma cell myeloma
     Dosage: 800 MG, Q15D
     Route: 042
     Dates: start: 20240705
  2. SARCLISA [Suspect]
     Active Substance: ISATUXIMAB-IRFC
     Dosage: 800 MG, QOW
     Route: 042
     Dates: start: 20240705

REACTIONS (5)
  - Headache [Unknown]
  - Hiccups [Unknown]
  - Weight increased [Unknown]
  - Pain [Unknown]
  - Cough [Unknown]
